FAERS Safety Report 12987699 (Version 1)
Quarter: 2016Q4

REPORT INFORMATION
  Report Type: Spontaneous
  Country: US (occurrence: US)
  Receive Date: 20161130
  Receipt Date: 20161130
  Transmission Date: 20170207
  Serious: Yes (Disabling)
  Sender: FDA-Public Use
  Company Number: None

PATIENT
  Age: 63 Year
  Sex: Male
  Weight: 66.68 kg

DRUGS (10)
  1. LEVOFLOXACIN. [Suspect]
     Active Substance: LEVOFLOXACIN
     Indication: SINUSITIS
     Route: 048
     Dates: start: 20150202, end: 20150303
  2. SUPER BETA PROSTATE [Concomitant]
     Active Substance: DIETARY SUPPLEMENT
  3. ADVANCED EDTA MEGA PLUS (OMEGA XL FISH OIL) [Concomitant]
  4. VITAMIN D3 [Concomitant]
     Active Substance: CHOLECALCIFEROL
  5. OCUVITE [Concomitant]
     Active Substance: VITAMINS
  6. MULTI-VITAMIN [Concomitant]
     Active Substance: .ALPHA.-TOCOPHEROL ACETATE, DL-\ASCORBIC ACID\CYANOCOBALAMIN\FLUORIDE ION\FOLIC ACID\NIACIN\PYRIDOXINE\RIBOFLAVIN\THIAMINE\VITAMIN A\VITAMIN D
  7. OXYCODONE [Concomitant]
     Active Substance: OXYCODONE
  8. LEVOFLOXACIN. [Suspect]
     Active Substance: LEVOFLOXACIN
     Indication: HEADACHE
     Route: 048
     Dates: start: 20150202, end: 20150303
  9. COLLAGEN +C [Concomitant]
  10. IBUPROFEN. [Concomitant]
     Active Substance: IBUPROFEN

REACTIONS (3)
  - Neck pain [None]
  - Tendon pain [None]
  - Musculoskeletal pain [None]

NARRATIVE: CASE EVENT DATE: 20150808
